FAERS Safety Report 8076355-6 (Version None)
Quarter: 2012Q1

REPORT INFORMATION
  Report Type: 
  Country: None (occurrence: None)
  Receive Date: 20120127
  Receipt Date: 20120118
  Transmission Date: 20120608
  Serious: Yes (Hospitalization, Other)
  Sender: FDA-Public Use
  Company Number: DE-ROCHE-1032278

PATIENT
  Age: 40 Year
  Sex: Male
  Weight: 88 kg

DRUGS (6)
  1. OMEPRAZOLE [Concomitant]
     Route: 048
     Dates: start: 20110729
  2. PREDNISOLONE [Concomitant]
     Indication: RHEUMATOID ARTHRITIS
     Route: 048
     Dates: start: 20100101
  3. ACTEMRA [Suspect]
     Indication: RHEUMATOID ARTHRITIS
     Dosage: LAST DOSE PRIOR TO SAE: 04/OCT/2011
     Route: 042
     Dates: start: 20110906
  4. CALCIUM D3 [Concomitant]
     Route: 048
     Dates: start: 20100101
  5. RAMIPRIL [Concomitant]
     Indication: HYPERTENSION
     Route: 048
     Dates: start: 20100101
  6. DIPYRONE TAB [Concomitant]
     Indication: PAIN
     Route: 048
     Dates: start: 20110801, end: 20111101

REACTIONS (1)
  - PANCREATITIS ACUTE [None]
